FAERS Safety Report 4396115-7 (Version None)
Quarter: 2004Q3

REPORT INFORMATION
  Report Type: 
  Country: None (occurrence: None)
  Receive Date: 20040713
  Receipt Date: 20040701
  Transmission Date: 20050211
  Serious: Yes (Hospitalization, Other)
  Sender: FDA-Public Use
  Company Number: FR-BRISTOL-MYERS SQUIBB COMPANY-12630489

PATIENT
  Age: 78 Year
  Sex: Female
  Weight: 42 kg

DRUGS (9)
  1. COAPROVEL TABS 300MG/12.5MG [Suspect]
     Indication: ESSENTIAL HYPERTENSION
     Dosage: COAPROVEL SUBSTITUTED WITH APROVEL
     Route: 048
     Dates: end: 20040422
  2. APROVEL TABS 300 MG [Suspect]
     Route: 048
     Dates: start: 20040423, end: 20040426
  3. PROZAC [Suspect]
     Indication: DYSTHYMIC DISORDER
     Route: 048
     Dates: start: 20040408, end: 20040420
  4. SERMION [Concomitant]
     Dates: end: 20040506
  5. STILNOX [Concomitant]
  6. XANAX [Concomitant]
     Dosage: 0.25 MG VERSUS 0.5 MG X 2/D
     Dates: end: 20040430
  7. PIROXICAM [Concomitant]
     Dates: end: 20040506
  8. VASTAREL [Concomitant]
  9. PIASCLEDINE [Concomitant]

REACTIONS (3)
  - ABDOMINAL PAIN [None]
  - CREATININE RENAL CLEARANCE DECREASED [None]
  - HYPONATRAEMIA [None]
